FAERS Safety Report 23034606 (Version 2)
Quarter: 2025Q1

REPORT INFORMATION
  Report Type: Spontaneous
  Country: US (occurrence: US)
  Receive Date: 20231005
  Receipt Date: 20250113
  Transmission Date: 20250409
  Serious: Yes (Other)
  Sender: GLAXOSMITHKLINE
  Company Number: US-GSKCCFUS-Case-01817593_AE-101683

PATIENT

DRUGS (2)
  1. BENLYSTA [Suspect]
     Active Substance: BELIMUMAB
     Indication: Product used for unknown indication
     Dates: start: 202305
  2. INFLUENZA VIRUS VACCINE [Concomitant]
     Active Substance: INFLUENZA VIRUS VACCINE
     Indication: Product used for unknown indication

REACTIONS (13)
  - Systemic lupus erythematosus [Recovering/Resolving]
  - Autoimmune hepatitis [Recovering/Resolving]
  - Sinusitis [Unknown]
  - Hypersensitivity [Unknown]
  - Head discomfort [Unknown]
  - Depression [Unknown]
  - Nausea [Unknown]
  - Oropharyngeal pain [Unknown]
  - Nasal congestion [Unknown]
  - Depressed mood [Unknown]
  - Crying [Unknown]
  - Seasonal allergy [Unknown]
  - Intentional dose omission [Unknown]
